FAERS Safety Report 8487550-6 (Version None)
Quarter: 2012Q3

REPORT INFORMATION
  Report Type: 
  Country: None (occurrence: None)
  Receive Date: 20120705
  Receipt Date: 20120702
  Transmission Date: 20120928
  Serious: Yes (Hospitalization)
  Sender: FDA-Public Use
  Company Number: US-AMGEN-USASP2011024317

PATIENT
  Age: 39 Year
  Sex: Female

DRUGS (2)
  1. ENBREL [Suspect]
     Indication: PSORIATIC ARTHROPATHY
     Dosage: 50 MG, QWK
     Dates: start: 20090501
  2. HUMIRA [Concomitant]
     Dosage: UNK

REACTIONS (4)
  - WEIGHT INCREASED [None]
  - PSORIATIC ARTHROPATHY [None]
  - CELLULITIS [None]
  - SYNOVIAL CYST [None]
